FAERS Safety Report 21650354 (Version 1)
Quarter: 2022Q4

REPORT INFORMATION
  Report Type: Spontaneous
  Country: US (occurrence: US)
  Receive Date: 20221128
  Receipt Date: 20221128
  Transmission Date: 20230113
  Serious: No
  Sender: FDA-Public Use
  Company Number: US-PFIZER INC-202201321687

PATIENT

DRUGS (1)
  1. PANTOPRAZOLE [Suspect]
     Active Substance: PANTOPRAZOLE
     Dosage: UNK

REACTIONS (6)
  - Aggression [Unknown]
  - Mood altered [Unknown]
  - Fatigue [Unknown]
  - Lethargy [Unknown]
  - Chest pain [Unknown]
  - Nervousness [Unknown]
